FAERS Safety Report 13272923 (Version 1)
Quarter: 2017Q1

REPORT INFORMATION
  Report Type: Spontaneous
  Country: CH (occurrence: CH)
  Receive Date: 20170227
  Receipt Date: 20170227
  Transmission Date: 20170428
  Serious: Yes (Other)
  Sender: FDA-Public Use
  Company Number: CH-AMGEN-CHESP2017028170

PATIENT
  Age: 83 Year
  Sex: Male

DRUGS (12)
  1. PURSANA [Concomitant]
     Active Substance: FIG FRUIT OIL\SORBITOL
  2. TEMGESIC [Concomitant]
     Active Substance: BUPRENORPHINE HYDROCHLORIDE
  3. XGEVA [Suspect]
     Active Substance: DENOSUMAB
     Indication: BONE LESION
  4. CLEXANE [Concomitant]
     Active Substance: ENOXAPARIN SODIUM
  5. MORPHINE [Concomitant]
     Active Substance: MORPHINE
     Dosage: UNK
     Dates: start: 20160811, end: 20160812
  6. DAFALGAN [Concomitant]
     Active Substance: ACETAMINOPHEN
     Dosage: UNK
     Dates: start: 20160810, end: 20160812
  7. XGEVA [Suspect]
     Active Substance: DENOSUMAB
     Indication: HYPERCALCAEMIA
     Dosage: 120 MG, UNK
     Route: 058
     Dates: start: 20160805
  8. LAXOBERON [Concomitant]
     Active Substance: SODIUM PICOSULFATE
  9. ZOLPIDEM [Concomitant]
     Active Substance: ZOLPIDEM\ZOLPIDEM TARTRATE
     Dosage: UNK
     Dates: end: 20160818
  10. NEXIUM [Concomitant]
     Active Substance: ESOMEPRAZOLE MAGNESIUM
  11. LYRICA [Concomitant]
     Active Substance: PREGABALIN
  12. DACIN [Concomitant]
     Active Substance: DACARBAZINE
     Indication: NEOPLASM MALIGNANT
     Dosage: UNK
     Dates: start: 20160914

REACTIONS (2)
  - Blood calcium decreased [Recovered/Resolved]
  - Electrocardiogram QT prolonged [Recovered/Resolved]

NARRATIVE: CASE EVENT DATE: 20160815
